FAERS Safety Report 18162502 (Version 1)
Quarter: 2020Q3

REPORT INFORMATION
  Report Type: Spontaneous
  Country: US (occurrence: US)
  Receive Date: 20200818
  Receipt Date: 20200818
  Transmission Date: 20201103
  Serious: Yes (Other)
  Sender: FDA-Public Use
  Company Number: None

PATIENT
  Age: 40 Year
  Sex: Female
  Weight: 104.85 kg

DRUGS (2)
  1. DEFINITY [Concomitant]
     Active Substance: PERFLUTREN
     Dates: start: 20200817, end: 20200817
  2. DEFINITY [Suspect]
     Active Substance: PERFLUTREN
     Indication: STRESS ECHOCARDIOGRAM
     Dosage: ?          OTHER FREQUENCY:ONCE;?
     Route: 040

REACTIONS (6)
  - Chest pain [None]
  - Anxiety [None]
  - Flushing [None]
  - Dyspnoea [None]
  - Dizziness [None]
  - Tachycardia [None]

NARRATIVE: CASE EVENT DATE: 20200817
